FAERS Safety Report 25796055 (Version 1)
Quarter: 2025Q3

REPORT INFORMATION
  Report Type: Spontaneous
  Country: US (occurrence: None)
  Receive Date: 20250911
  Receipt Date: 20250911
  Transmission Date: 20251021
  Serious: No
  Sender: FDA-CTU
  Company Number: None

PATIENT
  Age: 9 Year
  Sex: Female
  Weight: 30 kg

DRUGS (1)
  1. XOLAIR [Suspect]
     Active Substance: OMALIZUMAB
     Dates: start: 20250618, end: 20250911

REACTIONS (4)
  - Pyrexia [None]
  - Headache [None]
  - Vomiting [None]
  - Paraesthesia [None]

NARRATIVE: CASE EVENT DATE: 20250911
